FAERS Safety Report 4813533-0 (Version None)
Quarter: 2005Q4

REPORT INFORMATION
  Report Type: 
  Country: None (occurrence: None)
  Receive Date: 20051028
  Receipt Date: 20050222
  Transmission Date: 20060501
  Serious: No
  Sender: FDA-Public Use
  Company Number: US-GLAXOSMITHKLINE-A0546717A

PATIENT
  Age: 12 Year
  Sex: Male

DRUGS (4)
  1. ADVAIR DISKUS 100/50 [Suspect]
     Indication: ASTHMA
     Dosage: 1PUFF TWICE PER DAY
     Route: 055
  2. SINGULAIR [Concomitant]
  3. ALBUTEROL [Concomitant]
  4. TUMS [Concomitant]

REACTIONS (5)
  - NAUSEA [None]
  - PYREXIA [None]
  - RETCHING [None]
  - STOMACH DISCOMFORT [None]
  - THROAT IRRITATION [None]
